FAERS Safety Report 8580919-0 (Version None)
Quarter: 2012Q3

REPORT INFORMATION
  Report Type: 
  Country: None (occurrence: None)
  Receive Date: 20120809
  Receipt Date: 20120730
  Transmission Date: 20120928
  Serious: Yes (Hospitalization)
  Sender: FDA-Public Use
  Company Number: JP-ACCORD-014347

PATIENT
  Age: 68 Year
  Sex: Female

DRUGS (2)
  1. PREDNISOLONE [Suspect]
     Indication: SYSTEMIC SCLEROSIS
  2. TACROLIMUS [Suspect]
     Indication: SYSTEMIC SCLEROSIS
     Dosage: INITIALLY 1 MG/DAY THEN INCREASED TO 2 MG/DAY AND AGAIN INCREASED TO 3 MG/DAY.

REACTIONS (2)
  - OFF LABEL USE [None]
  - SCLERODERMA RENAL CRISIS [None]
